FAERS Safety Report 7439952-4 (Version None)
Quarter: 2011Q2

REPORT INFORMATION
  Report Type: 
  Country: None (occurrence: None)
  Receive Date: 20110427
  Receipt Date: 20110413
  Transmission Date: 20111010
  Serious: Yes (Hospitalization, Other)
  Sender: FDA-Public Use
  Company Number: PHEH2010US03471

PATIENT
  Sex: Female

DRUGS (28)
  1. SONATA [Concomitant]
  2. POTASSIUM CHLORIDE [Concomitant]
  3. KLOR-CON [Concomitant]
  4. ZELNORM [Suspect]
     Dosage: 6 MG, BID
     Route: 048
     Dates: start: 20050326
  5. ASPIRIN [Concomitant]
  6. DIOVAN HCT [Concomitant]
  7. ATENOLOL [Concomitant]
  8. ACETAMINOPHEN [Concomitant]
  9. PEPCID [Concomitant]
  10. DIOVAN [Concomitant]
  11. ZANTAC [Concomitant]
  12. ENULOSE [Concomitant]
  13. PRILOSEC [Concomitant]
  14. SYNTHROID [Concomitant]
  15. PREVACID [Concomitant]
  16. VALIUM [Concomitant]
  17. NITROGLYCERIN ^PHARMACIA + UPJOHN^ [Concomitant]
  18. LEVOTHYROXINE SODIUM [Concomitant]
  19. NITROLINGUAL PUMPSPRAY [Concomitant]
  20. AVANDIA [Concomitant]
  21. DARVOCET-N 50 [Concomitant]
  22. AMBIEN [Concomitant]
  23. DIAZEPAM [Concomitant]
  24. ANTACID ^WALGREENS^ [Concomitant]
  25. ALTACE [Concomitant]
  26. TOPROL-XL [Concomitant]
  27. RANITIDINE [Concomitant]
  28. GAVISCON ^SCHERING-PLOUGH^ [Concomitant]

REACTIONS (12)
  - MALAISE [None]
  - INSOMNIA [None]
  - ANGINA UNSTABLE [None]
  - GALLBLADDER DISORDER [None]
  - FATIGUE [None]
  - IMPAIRED GASTRIC EMPTYING [None]
  - CHEST DISCOMFORT [None]
  - NIGHT SWEATS [None]
  - UMBILICAL HERNIA [None]
  - DYSPNOEA EXERTIONAL [None]
  - CHEST PAIN [None]
  - INJURY [None]
